FAERS Safety Report 4780611-4 (Version None)
Quarter: 2005Q3

REPORT INFORMATION
  Report Type: 
  Country: None (occurrence: None)
  Receive Date: 20050926
  Receipt Date: 20050915
  Transmission Date: 20060218
  Serious: Yes (Other)
  Sender: FDA-Public Use
  Company Number: 2005129722

PATIENT
  Sex: Female
  Weight: 83.9154 kg

DRUGS (4)
  1. GLUCOTROL XL [Suspect]
     Indication: DIABETES MELLITUS
     Dosage: 10 MG (5 MG, 2 IN 1 D), ORAL
     Route: 048
     Dates: start: 20010101
  2. OTHER ANTIHYPERTENSIVES (OTHER ANTIHYPERTENSIVES) [Concomitant]
  3. ALLEGRA [Concomitant]
  4. ALLERGY MEDICATION (ALLERGY MEDICATION) [Concomitant]

REACTIONS (2)
  - BREAST CANCER FEMALE [None]
  - TOOTH DISORDER [None]
